FAERS Safety Report 14319924 (Version 2)
Quarter: 2018Q1

REPORT INFORMATION
  Report Type: Spontaneous
  Country: US (occurrence: US)
  Receive Date: 20171222
  Receipt Date: 20180227
  Transmission Date: 20180509
  Serious: Yes (Other)
  Sender: FDA-Public Use
  Company Number: US-PFIZER INC-2017541714

PATIENT
  Age: 76 Year
  Sex: Female
  Weight: 52 kg

DRUGS (7)
  1. PREMARIN [Suspect]
     Active Substance: ESTROGENS, CONJUGATED
     Indication: BLADDER PROLAPSE
  2. MAGNESIUM MALATE [Concomitant]
     Indication: MUSCLE SPASMS
     Dosage: 2 DF, UNK
  3. FIBER CHOICE PLUS CALCIUM [Concomitant]
     Dosage: UNK
  4. PREMARIN [Suspect]
     Active Substance: ESTROGENS, CONJUGATED
     Indication: ATROPHIC VULVOVAGINITIS
     Dosage: 0.5 G, 2X/WEEK (ONE DOSE OF IT AT NIGHT; TWICE A WEEK AT BED TIME ABOUT 10 O^CLOCK/ AT BED TIME)
     Route: 067
     Dates: start: 20171213, end: 20171216
  5. VITAMIN D3 [Concomitant]
     Active Substance: CHOLECALCIFEROL
     Dosage: 8000 IU, UNK (FOUR LITTLE CAPSULES)
  6. KRILL OIL [Concomitant]
     Active Substance: DIETARY SUPPLEMENT
     Dosage: 750 MG, UNK (ONLY TAKE ONE)
  7. CALCIUM 600+D3 [Concomitant]
     Active Substance: CALCIUM CARBONATE\VITAMIN D
     Dosage: 2 DF, UNK (TWO DOSE)

REACTIONS (2)
  - Accidental overdose [Unknown]
  - Muscle spasms [Recovered/Resolved]

NARRATIVE: CASE EVENT DATE: 20171214
